FAERS Safety Report 11310338 (Version 2)
Quarter: 2015Q3

REPORT INFORMATION
  Report Type: Report from Study
  Country: US (occurrence: US)
  Receive Date: 20150724
  Receipt Date: 20150727
  Transmission Date: 20151125
  Serious: Yes (Other)
  Sender: FDA-Public Use
  Company Number: US-ABBVIE-15P-163-1432897-00

PATIENT
  Age: 30 Year
  Sex: Female

DRUGS (3)
  1. LUPRON DEPOT [Suspect]
     Active Substance: LEUPROLIDE ACETATE
     Indication: ENDOMETRIOSIS
     Route: 050
     Dates: start: 20150701
  2. NORETHINDRONE ACETATE. [Concomitant]
     Active Substance: NORETHINDRONE ACETATE
     Indication: PRODUCT USED FOR UNKNOWN INDICATION
     Route: 048
     Dates: start: 20150401
  3. LUPRON DEPOT [Suspect]
     Active Substance: LEUPROLIDE ACETATE
     Indication: ENDOMETRIOSIS
     Route: 050
     Dates: start: 20150401

REACTIONS (5)
  - Appendicectomy [Recovered/Resolved]
  - Menorrhagia [Not Recovered/Not Resolved]
  - Sinusitis [Recovering/Resolving]
  - Endometriosis [Recovered/Resolved]
  - Endometriosis [Recovered/Resolved]

NARRATIVE: CASE EVENT DATE: 20150401
